FAERS Safety Report 11584712 (Version 1)
Quarter: 2015Q4

REPORT INFORMATION
  Report Type: Spontaneous
  Country: DE (occurrence: DE)
  Receive Date: 20151001
  Receipt Date: 20151001
  Transmission Date: 20160304
  Serious: Yes (Other)
  Sender: FDA-Public Use
  Company Number: DE-DRREDDYS-GER/GER/15/0052891

PATIENT
  Age: 43 Year
  Sex: Male
  Weight: 60 kg

DRUGS (3)
  1. METFORMIN 500 [Suspect]
     Active Substance: METFORMIN HYDROCHLORIDE
     Indication: PRODUCT USED FOR UNKNOWN INDICATION
     Dosage: 50 TABLETS POSSIBLE
     Route: 048
     Dates: start: 201509, end: 201509
  2. SIMVABETA [Suspect]
     Active Substance: SIMVASTATIN
     Indication: PRODUCT USED FOR UNKNOWN INDICATION
     Route: 048
     Dates: start: 201509, end: 201509
  3. ZOLEM [Suspect]
     Active Substance: ALPRAZOLAM
     Indication: PRODUCT USED FOR UNKNOWN INDICATION
     Dosage: 50 TABLETS POSSIBLE
     Route: 048
     Dates: start: 201509, end: 201509

REACTIONS (5)
  - Chills [Unknown]
  - Hyperglycaemia [Unknown]
  - Vomiting [Unknown]
  - Hypertension [Unknown]
  - Intentional overdose [Unknown]

NARRATIVE: CASE EVENT DATE: 201509
